FAERS Safety Report 25377532 (Version 1)
Quarter: 2025Q2

REPORT INFORMATION
  Report Type: Spontaneous
  Country: IT (occurrence: IT)
  Receive Date: 20250530
  Receipt Date: 20250530
  Transmission Date: 20250717
  Serious: Yes (Other)
  Sender: SAMSUNG BIOEPIS
  Company Number: IT-SAMSUNG BIOEPIS-SB-2025-18599

PATIENT
  Sex: Female

DRUGS (3)
  1. TRASTUZUMAB [Suspect]
     Active Substance: TRASTUZUMAB
     Indication: Paget^s disease of the vulva
  2. PACLITAXEL [Suspect]
     Active Substance: PACLITAXEL
     Indication: Paget^s disease of the vulva
  3. PACLITAXEL [Suspect]
     Active Substance: PACLITAXEL
     Indication: Paget^s disease of the vulva

REACTIONS (6)
  - Haematotoxicity [Unknown]
  - Pyrexia [Unknown]
  - Eyelid oedema [Unknown]
  - Anaemia [Unknown]
  - Drug effective for unapproved indication [Unknown]
  - Off label use [Unknown]
